FAERS Safety Report 7383068-2 (Version None)
Quarter: 2011Q1

REPORT INFORMATION
  Report Type: 
  Country: None (occurrence: None)
  Receive Date: 20110330
  Receipt Date: 20110325
  Transmission Date: 20110831
  Serious: No
  Sender: FDA-Public Use
  Company Number: US-PFIZER INC-2011067392

PATIENT
  Sex: Female
  Weight: 83.9 kg

DRUGS (2)
  1. PHENTERMINE [Concomitant]
     Dosage: UNK
  2. EFFEXOR XR [Suspect]
     Indication: DEPRESSION
     Dosage: 75 MG, 1X/DAY

REACTIONS (3)
  - NAUSEA [None]
  - ANGER [None]
  - DIZZINESS [None]
